FAERS Safety Report 11749416 (Version 7)
Quarter: 2020Q2

REPORT INFORMATION
  Report Type: Spontaneous
  Country: US (occurrence: US)
  Receive Date: 20151118
  Receipt Date: 20200529
  Transmission Date: 20200713
  Serious: No
  Sender: FDA-Public Use
  Company Number: US-PFIZER INC-2015380177

PATIENT
  Age: 73 Year
  Sex: Female
  Weight: 87.09 kg

DRUGS (2)
  1. LYRICA [Suspect]
     Active Substance: PREGABALIN
     Dosage: 150 MG, 3X/DAY (1 TAB THREE TIMES A DAY BY MOUTH)
     Route: 048
  2. LYRICA [Suspect]
     Active Substance: PREGABALIN
     Indication: FIBROMYALGIA
     Dosage: 150 MG, 2X/DAY
     Route: 048

REACTIONS (6)
  - Stress [Unknown]
  - Amnesia [Unknown]
  - Pain [Unknown]
  - Blood pressure increased [Unknown]
  - Feeling abnormal [Unknown]
  - Malaise [Unknown]
